FAERS Safety Report 4346031-1 (Version None)
Quarter: 2004Q2

REPORT INFORMATION
  Report Type: 
  Country: None (occurrence: None)
  Receive Date: 20040426
  Receipt Date: 20030313
  Transmission Date: 20050107
  Serious: No
  Sender: FDA-Public Use
  Company Number: US-GLAXOSMITHKLINE-A0400175A

PATIENT
  Age: 33 Year
  Sex: Male

DRUGS (1)
  1. ZOFRAN [Suspect]
     Indication: NAUSEA
     Route: 048
     Dates: start: 19920101, end: 19920101

REACTIONS (2)
  - MYALGIA [None]
  - RASH MORBILLIFORM [None]
